FAERS Safety Report 7915265-9 (Version None)
Quarter: 2011Q4

REPORT INFORMATION
  Report Type: 
  Country: None (occurrence: None)
  Receive Date: 20111115
  Receipt Date: 20111108
  Transmission Date: 20120403
  Serious: Yes (Life-Threatening, Hospitalization, Disabling, Other)
  Sender: FDA-Public Use
  Company Number: GB-ABBOTT-11P-167-0868588-00

PATIENT
  Age: 28 Year
  Sex: Female

DRUGS (15)
  1. LORAZEPAM [Concomitant]
     Indication: PRODUCT USED FOR UNKNOWN INDICATION
  2. FERROUS SULFATE TAB [Concomitant]
     Indication: PRODUCT USED FOR UNKNOWN INDICATION
  3. ZOPICLONE [Concomitant]
     Indication: PRODUCT USED FOR UNKNOWN INDICATION
  4. TRAMADOL HCL [Concomitant]
     Indication: PRODUCT USED FOR UNKNOWN INDICATION
  5. ELECTROLYTES NOS/MACROGOL 3350 [Concomitant]
     Indication: PRODUCT USED FOR UNKNOWN INDICATION
  6. VALPROATE SODIUM [Suspect]
     Indication: AFFECTIVE DISORDER
     Route: 048
     Dates: end: 20111028
  7. ACETAMINOPHEN [Concomitant]
     Indication: PRODUCT USED FOR UNKNOWN INDICATION
  8. CARBIMAZOLE [Concomitant]
     Indication: PRODUCT USED FOR UNKNOWN INDICATION
  9. HALOPERIDOL [Concomitant]
     Indication: PRODUCT USED FOR UNKNOWN INDICATION
  10. DERMOL SOL [Concomitant]
     Indication: PRODUCT USED FOR UNKNOWN INDICATION
  11. PROPRANOLOL [Concomitant]
     Indication: PRODUCT USED FOR UNKNOWN INDICATION
     Dates: start: 20111020
  12. PROCYCLIDINE HYDROCHLORIDE 2MG TAB [Concomitant]
     Indication: PRODUCT USED FOR UNKNOWN INDICATION
  13. GAVISCON [Concomitant]
     Indication: PRODUCT USED FOR UNKNOWN INDICATION
  14. SCOPOLAMINE [Concomitant]
     Indication: PRODUCT USED FOR UNKNOWN INDICATION
     Dates: start: 20111020
  15. LYMECYCLINE [Concomitant]
     Indication: PRODUCT USED FOR UNKNOWN INDICATION

REACTIONS (6)
  - VOMITING [None]
  - ABDOMINAL PAIN [None]
  - OFF LABEL USE [None]
  - MALAISE [None]
  - BACK PAIN [None]
  - PANCREATITIS ACUTE [None]
